FAERS Safety Report 16856571 (Version 2)
Quarter: 2019Q3

REPORT INFORMATION
  Report Type: Spontaneous
  Country: FR (occurrence: FR)
  Receive Date: 20190926
  Receipt Date: 20190926
  Transmission Date: 20191005
  Serious: Yes (Hospitalization, Other)
  Sender: FDA-Public Use
  Company Number: FR-PFIZER INC-2019398509

PATIENT
  Age: 46 Year
  Sex: Female

DRUGS (3)
  1. CYPROTERONE [Suspect]
     Active Substance: CYPROTERONE
     Indication: HORMONE REPLACEMENT THERAPY
  2. ESTRADIOL. [Suspect]
     Active Substance: ESTRADIOL
     Indication: HORMONE THERAPY
     Dosage: UNK
  3. CYPROTERONE [Suspect]
     Active Substance: CYPROTERONE
     Indication: ANDROGENETIC ALOPECIA
     Dosage: 50 MG, DAILY
     Route: 048

REACTIONS (1)
  - Paraesthesia [Recovered/Resolved]
